FAERS Safety Report 6439636-5 (Version None)
Quarter: 2009Q4

REPORT INFORMATION
  Report Type: 
  Country: None (occurrence: None)
  Receive Date: 20091113
  Receipt Date: 20091106
  Transmission Date: 20100525
  Serious: Yes (Hospitalization, Other)
  Sender: FDA-Public Use
  Company Number: BR-JNJFOC-20091102711

PATIENT
  Age: 61 Year
  Sex: Male
  Weight: 52 kg

DRUGS (6)
  1. DURAGESIC-100 [Suspect]
     Indication: CANCER PAIN
     Route: 062
     Dates: start: 20090101
  2. OMEPRAZOLE [Concomitant]
     Indication: GASTROINTESTINAL DISORDER THERAPY
     Route: 048
  3. DEXA-CITONEURIN [Concomitant]
     Route: 065
  4. ONDANSETRON [Concomitant]
     Indication: VOMITING
     Dates: start: 20090101
  5. PLASIL [Concomitant]
     Indication: VOMITING
     Route: 065
  6. TYLENOL (CAPLET) [Concomitant]
     Indication: PYREXIA
     Route: 065
     Dates: start: 20090101

REACTIONS (2)
  - ABSCESS [None]
  - PYREXIA [None]
